FAERS Safety Report 4911760-5 (Version None)
Quarter: 2006Q1

REPORT INFORMATION
  Report Type: 
  Country: None (occurrence: None)
  Receive Date: 20060213
  Receipt Date: 20060213
  Transmission Date: 20060701
  Serious: Yes (Life-Threatening, Hospitalization)
  Sender: FDA-Public Use
  Company Number: None

PATIENT
  Age: 42 Year
  Sex: Female
  Weight: 78.0187 kg

DRUGS (1)
  1. TEQUIN [Suspect]
     Indication: RESPIRATORY TRACT INFECTION
     Dosage: DAILY  PO
     Route: 048
     Dates: start: 20060105, end: 20060114

REACTIONS (1)
  - LIVER FUNCTION TEST ABNORMAL [None]
